FAERS Safety Report 5824267-8 (Version None)
Quarter: 2008Q3

REPORT INFORMATION
  Report Type: 
  Country: None (occurrence: None)
  Receive Date: 20080728
  Receipt Date: 20080717
  Transmission Date: 20090109
  Serious: Yes (Hospitalization, Other)
  Sender: FDA-Public Use
  Company Number: AU-AVENTIS-200813675EU

PATIENT
  Age: 58 Year
  Sex: Male

DRUGS (1)
  1. RILUTEK [Suspect]
     Route: 048
     Dates: start: 20080419

REACTIONS (3)
  - DYSPNOEA [None]
  - FALL [None]
  - SOMNOLENCE [None]
